FAERS Safety Report 6970420 (Version 2)
Quarter: 2013Q4

REPORT INFORMATION
  Report Type: Spontaneous
  Country: US (occurrence: US)
  Receive Date: 20090416
  Receipt Date: 20131113
  Transmission Date: 20140711
  Serious: No
  Sender: FDA-Public Use
  Company Number: US-B.I. PHARMACEUTICALS,INC./RIDGEFIELD-2009-BP-04465BP

PATIENT
  Sex: Male
  Weight: 99.79 kg

DRUGS (2)
  1. SPIRIVA HANDIHALER [Suspect]
     Indication: EMPHYSEMA
     Dosage: 18 MCG
     Route: 048
     Dates: start: 2004
  2. VITAMINS [Concomitant]
     Route: 048

REACTIONS (6)
  - Hypertension [Not Recovered/Not Resolved]
  - Dyspnoea [Not Recovered/Not Resolved]
  - Dyspnoea [Not Recovered/Not Resolved]
  - Gastric ulcer [Not Recovered/Not Resolved]
  - Dry throat [Not Recovered/Not Resolved]
  - Choking [Not Recovered/Not Resolved]
